FAERS Safety Report 4705041-2 (Version None)
Quarter: 2005Q3

REPORT INFORMATION
  Report Type: 
  Country: None (occurrence: None)
  Receive Date: 20050701
  Receipt Date: 20050622
  Transmission Date: 20060218
  Serious: Yes (Death)
  Sender: FDA-Public Use
  Company Number: PHBS2005CN08894

PATIENT
  Age: 70 Year
  Sex: Male

DRUGS (1)
  1. VOLTAREN [Suspect]
     Indication: JOINT INJURY
     Dosage: 75 MG/DAY
     Route: 048
     Dates: start: 20050430, end: 20050501

REACTIONS (4)
  - INTESTINAL PERFORATION [None]
  - STOMACH DISCOMFORT [None]
  - SURGERY [None]
  - VOMITING [None]
